FAERS Safety Report 6138744-6 (Version None)
Quarter: 2009Q1

REPORT INFORMATION
  Report Type: 
  Country: None (occurrence: None)
  Receive Date: 20090327
  Receipt Date: 20090318
  Transmission Date: 20090719
  Serious: Yes (Hospitalization)
  Sender: FDA-Public Use
  Company Number: WAES 0903USA04337

PATIENT
  Age: 65 Year
  Sex: Female

DRUGS (5)
  1. FOSAMAX [Suspect]
     Indication: OSTEOPOROSIS
     Dosage: 35 MG/WKY; PO
     Route: 048
     Dates: start: 20070727, end: 20071116
  2. TAB LOXONIN (LOXOPROFEN SODIUM) [Suspect]
     Indication: BACK PAIN
     Dosage: 60 MG, PRN, PO
     Route: 048
     Dates: start: 20070824, end: 20071117
  3. ELCITONIN [Concomitant]
  4. MOHRUS [Concomitant]
  5. MG OXIDE [Concomitant]

REACTIONS (1)
  - GASTRIC ULCER HAEMORRHAGE [None]
